FAERS Safety Report 25617498 (Version 1)
Quarter: 2025Q3

REPORT INFORMATION
  Report Type: Spontaneous
  Country: US (occurrence: None)
  Receive Date: 20250728
  Receipt Date: 20250728
  Transmission Date: 20251021
  Serious: Yes (Life-Threatening, Disabling, Other)
  Sender: FDA-CTU
  Company Number: None

PATIENT
  Age: 31 Year
  Sex: Male
  Weight: 2.49 kg

DRUGS (5)
  1. DOXYCYCLINE [Suspect]
     Active Substance: DOXYCYCLINE
  2. Biktarvy 50 mg / 200 mg / 25 mg [Concomitant]
  3. FISH OIL [Concomitant]
     Active Substance: FISH OIL
  4. VITAMINS [Concomitant]
     Active Substance: VITAMINS
  5. gummies [Concomitant]

REACTIONS (1)
  - Adverse drug reaction [None]

NARRATIVE: CASE EVENT DATE: 20250609
